FAERS Safety Report 5505839-7 (Version None)
Quarter: 2007Q4

REPORT INFORMATION
  Report Type: 
  Country: None (occurrence: None)
  Receive Date: 20071102
  Receipt Date: 20071022
  Transmission Date: 20080405
  Serious: Yes (Other)
  Sender: FDA-Public Use
  Company Number: US-PFIZER INC-2007089886

PATIENT
  Sex: Female
  Weight: 48 kg

DRUGS (5)
  1. CHANTIX [Suspect]
     Indication: SMOKING CESSATION THERAPY
  2. PRAVASTATIN [Concomitant]
  3. PLAVIX [Concomitant]
  4. NORVASC [Concomitant]
  5. FENTANYL [Concomitant]
     Indication: PAIN

REACTIONS (7)
  - ANGER [None]
  - DEPRESSED MOOD [None]
  - EMOTIONAL DISORDER [None]
  - FATIGUE [None]
  - JOINT DISLOCATION [None]
  - JOINT INJURY [None]
  - WEIGHT INCREASED [None]
